FAERS Safety Report 6406024-7 (Version None)
Quarter: 2009Q4

REPORT INFORMATION
  Report Type: 
  Country: None (occurrence: None)
  Receive Date: 20091016
  Receipt Date: 20091016
  Transmission Date: 20100525
  Serious: Yes (Hospitalization)
  Sender: FDA-Public Use
  Company Number: None

PATIENT
  Sex: Male
  Weight: 68.9 kg

DRUGS (2)
  1. CISPLATIN [Suspect]
     Dosage: 152 MG
  2. ETOPOSIDE [Suspect]
     Dosage: 570 MG

REACTIONS (5)
  - BLOOD CREATINE INCREASED [None]
  - CANDIDIASIS [None]
  - CARDIAC FAILURE [None]
  - HYPERGLYCAEMIA [None]
  - SYSTEMIC INFLAMMATORY RESPONSE SYNDROME [None]
